FAERS Safety Report 5985992-1 (Version None)
Quarter: 2008Q4

REPORT INFORMATION
  Report Type: 
  Country: None (occurrence: None)
  Receive Date: 20081209
  Receipt Date: 20081204
  Transmission Date: 20090506
  Serious: No
  Sender: FDA-Public Use
  Company Number: CA-JNJFOC-20081200610

PATIENT
  Sex: Female

DRUGS (5)
  1. DURAGESIC-100 [Suspect]
     Indication: PAIN
     Route: 062
  2. COZAAR [Concomitant]
     Indication: HYPERTENSION
     Dosage: INITIATED PRIOR TO 2001
  3. OXYBUTYNIN CHLORIDE [Concomitant]
     Indication: HYPERTONIC BLADDER
     Dosage: INITIATED PRIOR TO 2001
  4. MORPHINE SULFATE [Concomitant]
     Indication: PAIN
  5. LYRICA [Concomitant]
     Indication: PAIN

REACTIONS (2)
  - INAPPROPRIATE SCHEDULE OF DRUG ADMINISTRATION [None]
  - PRODUCT QUALITY ISSUE [None]
